FAERS Safety Report 8396256-3 (Version None)
Quarter: 2012Q1

REPORT INFORMATION
  Report Type: 
  Country: None (occurrence: None)
  Receive Date: 20120323
  Receipt Date: 20110725
  Transmission Date: 20120608
  Serious: Yes (Other)
  Sender: FDA-Public Use
  Company Number: 163-21880-11072917

PATIENT
  Age: 61 Year
  Sex: Male
  Weight: 83.9154 kg

DRUGS (9)
  1. DECADRON [Concomitant]
  2. VELCADE [Concomitant]
  3. COMBIGAN (COMBIGAN) [Concomitant]
  4. LUBRICATING EYE DROPS (OPHTHALMOLOGICALS) [Concomitant]
  5. ASPIRIN [Concomitant]
  6. NEXIUM [Concomitant]
  7. REVLIMID [Suspect]
     Indication: MULTIPLE MYELOMA
     Dosage: 25 MG, 1 IN 1 D, PO, 10 MG, 1 IN 1 D, PO
     Route: 048
     Dates: start: 20110501
  8. CARBAMAZEPINE [Concomitant]
  9. LOVENOX [Concomitant]

REACTIONS (1)
  - THROMBOSIS [None]
